FAERS Safety Report 12184230 (Version 1)
Quarter: 2016Q1

REPORT INFORMATION
  Report Type: Spontaneous
  Country: US (occurrence: US)
  Receive Date: 20160316
  Receipt Date: 20160316
  Transmission Date: 20160526
  Serious: No
  Sender: FDA-Public Use
  Company Number: US-GLAXOSMITHKLINE-US2016035098

PATIENT
  Age: 49 Year
  Sex: Female

DRUGS (3)
  1. ANORO ELLIPTA [Suspect]
     Active Substance: UMECLIDINIUM BROMIDE\VILANTEROL TRIFENATATE
     Indication: ASTHMA
     Dosage: UNK
     Route: 055
     Dates: start: 201602
  2. VENTOLIN HFA [Concomitant]
     Active Substance: ALBUTEROL SULFATE
  3. ANORO ELLIPTA [Suspect]
     Active Substance: UMECLIDINIUM BROMIDE\VILANTEROL TRIFENATATE
     Dosage: 1 PUFF(S), QD
     Dates: end: 20160309

REACTIONS (9)
  - Cough [Recovered/Resolved]
  - Influenza like illness [Recovered/Resolved]
  - Expired product administered [Recovered/Resolved]
  - Nasal oedema [Recovered/Resolved]
  - Sinusitis [Recovered/Resolved]
  - Muscle tightness [Recovered/Resolved]
  - Swelling face [Recovered/Resolved]
  - Erythema [Recovered/Resolved]
  - Pyrexia [Recovered/Resolved]

NARRATIVE: CASE EVENT DATE: 201602
